FAERS Safety Report 24230448 (Version 1)
Quarter: 2024Q3

REPORT INFORMATION
  Report Type: Spontaneous
  Country: CN (occurrence: CN)
  Receive Date: 20240821
  Receipt Date: 20240821
  Transmission Date: 20241016
  Serious: Yes (Other)
  Sender: RANBAXY
  Company Number: CN-SUN PHARMACEUTICAL INDUSTRIES LTD-2024R1-461640

PATIENT
  Age: 32 Year
  Sex: Male

DRUGS (2)
  1. FINGOLIMOD [Suspect]
     Active Substance: FINGOLIMOD
     Indication: Multiple sclerosis
     Dosage: 0.5 MILLIGRAM, DAILY
     Route: 065
     Dates: start: 202009
  2. MYCOPHENOLATE MOFETIL [Suspect]
     Active Substance: MYCOPHENOLATE MOFETIL
     Indication: Multiple sclerosis
     Dosage: 1-2 G, DAILY
     Route: 065

REACTIONS (1)
  - Lymphoproliferative disorder [Unknown]

NARRATIVE: CASE EVENT DATE: 20210917
